FAERS Safety Report 9397518 (Version 1)
Quarter: 2013Q3

REPORT INFORMATION
  Report Type: Spontaneous
  Country: US (occurrence: US)
  Receive Date: 20130712
  Receipt Date: 20130712
  Transmission Date: 20140515
  Serious: Yes (Hospitalization, Other)
  Sender: FDA-Public Use
  Company Number: US-JNJFOC-20130702720

PATIENT
  Age: 49 Year
  Sex: Female
  Weight: 58.47 kg

DRUGS (12)
  1. NUCYNTA [Suspect]
     Indication: PAIN
     Dosage: 50 MG (25MG) TWICE DAILY ORAL
     Route: 048
     Dates: start: 20130510
  2. DILAUDID [Suspect]
     Indication: PAIN
     Route: 065
  3. PROVENTIL [Concomitant]
     Route: 065
  4. COMBIVENT [Concomitant]
     Route: 065
  5. COUMADIN [Concomitant]
     Route: 065
  6. ENOXAPARIN [Concomitant]
     Route: 065
  7. FIORICET [Concomitant]
     Route: 065
  8. LASIX [Concomitant]
     Route: 065
  9. VITAMIN D [Concomitant]
     Route: 065
  10. POTASSIUM [Concomitant]
     Route: 065
  11. SAVELLA [Concomitant]
     Route: 065
  12. TOPIRAMATE [Concomitant]
     Route: 065

REACTIONS (5)
  - Pulmonary embolism [Recovered/Resolved]
  - Hysterectomy [Unknown]
  - Migraine [Recovered/Resolved]
  - Dizziness [Recovered/Resolved]
  - Wrong technique in drug usage process [Recovered/Resolved]
